FAERS Safety Report 5737669-5 (Version None)
Quarter: 2008Q2

REPORT INFORMATION
  Report Type: 
  Country: None (occurrence: None)
  Receive Date: 20080514
  Receipt Date: 20080506
  Transmission Date: 20081010
  Serious: Yes (Hospitalization)
  Sender: FDA-Public Use
  Company Number: US-AMGEN-US276582

PATIENT
  Weight: 45.9 kg

DRUGS (1)
  1. VECTIBIX [Suspect]
     Indication: COLORECTAL CANCER
     Route: 042
     Dates: start: 20080401

REACTIONS (1)
  - RENAL FAILURE [None]
